FAERS Safety Report 13587663 (Version 1)
Quarter: 2017Q2

REPORT INFORMATION
  Report Type: Spontaneous
  Country: US (occurrence: US)
  Receive Date: 20170526
  Receipt Date: 20170526
  Transmission Date: 20170830
  Serious: Yes (Other)
  Sender: FDA-Public Use
  Company Number: US-BAUSCH-BL-2017-017257

PATIENT
  Age: 48 Year
  Sex: Female

DRUGS (4)
  1. FLUOROURACIL. [Suspect]
     Active Substance: FLUOROURACIL
     Indication: ANAL SQUAMOUS CELL CARCINOMA
     Dosage: PER DAY, ON AN EVERY FOUR WEEK SCHEDULE, 96-H (HOUR) CONTINUOUS INFUSION
     Route: 041
     Dates: end: 2011
  2. CISPLATIN. [Suspect]
     Active Substance: CISPLATIN
     Indication: METASTATIC SQUAMOUS CELL CARCINOMA
     Dosage: ON AN EVERY FOUR WEEK SCHEDULE
     Route: 065
     Dates: end: 2011
  3. CISPLATIN. [Suspect]
     Active Substance: CISPLATIN
     Indication: ANAL SQUAMOUS CELL CARCINOMA
     Dosage: ON AN EVERY FOUR WEEK SCHEDULE
     Route: 065
     Dates: end: 2011
  4. FLUOROURACIL. [Suspect]
     Active Substance: FLUOROURACIL
     Indication: METASTATIC SQUAMOUS CELL CARCINOMA
     Dosage: PER DAY, ON AN EVERY FOUR WEEK SCHEDULE, 96 H (HOUR) CONTINUOUS INFUSION
     Route: 065
     Dates: end: 2011

REACTIONS (4)
  - Fatigue [Unknown]
  - Cytopenia [Not Recovered/Not Resolved]
  - CD4 lymphocytes decreased [Unknown]
  - Dysgeusia [Unknown]
